FAERS Safety Report 25409753 (Version 1)
Quarter: 2025Q2

REPORT INFORMATION
  Report Type: Spontaneous
  Country: US (occurrence: US)
  Receive Date: 20250607
  Receipt Date: 20250607
  Transmission Date: 20250717
  Serious: No
  Sender: RIGEL PHARMACEUTICALS
  Company Number: US-RIGEL Pharmaceuticals. INC- 20241000105

PATIENT
  Sex: Female

DRUGS (2)
  1. TAVALISSE [Suspect]
     Active Substance: FOSTAMATINIB
     Indication: Immune thrombocytopenia
     Dosage: 150 MG, BID
     Route: 048
  2. PREDNISONE [Concomitant]
     Active Substance: PREDNISONE
     Indication: Product used for unknown indication

REACTIONS (8)
  - Platelet count decreased [Unknown]
  - Retinal migraine [Unknown]
  - Balance disorder [Unknown]
  - Weight increased [Unknown]
  - Malaise [Unknown]
  - Fatigue [Unknown]
  - Diarrhoea [Unknown]
  - Drug ineffective [Unknown]
